FAERS Safety Report 20249383 (Version 1)
Quarter: 2021Q4

REPORT INFORMATION
  Report Type: Spontaneous
  Country: US (occurrence: US)
  Receive Date: 20211229
  Receipt Date: 20211229
  Transmission Date: 20220303
  Serious: No
  Sender: FDA-Public Use
  Company Number: US-PFIZER INC-202101294251

PATIENT
  Age: 52 Year
  Sex: Female
  Weight: 54.785 kg

DRUGS (1)
  1. IBRANCE [Suspect]
     Active Substance: PALBOCICLIB
     Indication: Breast cancer female
     Dosage: 75 MG, CYCLIC (DAILY X 21 DAYS)
     Route: 048
     Dates: start: 202003

REACTIONS (2)
  - White blood cell count decreased [Unknown]
  - Tumour marker increased [Unknown]
